FAERS Safety Report 4596180-8 (Version None)
Quarter: 2005Q1

REPORT INFORMATION
  Report Type: 
  Country: None (occurrence: None)
  Receive Date: 20050225
  Receipt Date: 20050217
  Transmission Date: 20050727
  Serious: Yes (Hospitalization, Other)
  Sender: FDA-Public Use
  Company Number: 2005-02-0967

PATIENT
  Age: 64 Year
  Sex: Female

DRUGS (4)
  1. REBETOL [Suspect]
     Indication: HEPATITIS C
     Dosage: 1000 MG QD ORAL
     Route: 048
     Dates: start: 19990522, end: 19990806
  2. REBETOL [Suspect]
  3. VIRAFERONPEG [Suspect]
     Indication: HEPATITIS C
     Dosage: 3 MU TIW SUBCUTANEOUS
     Route: 058
     Dates: start: 19990522, end: 19990806
  4. VIRAFERONPEG [Suspect]

REACTIONS (3)
  - ANAEMIA [None]
  - ANGINA PECTORIS [None]
  - PULMONARY EMBOLISM [None]
